FAERS Safety Report 24405310 (Version 1)
Quarter: 2024Q4

REPORT INFORMATION
  Report Type: Spontaneous
  Country: US (occurrence: US)
  Receive Date: 20241007
  Receipt Date: 20241007
  Transmission Date: 20250114
  Serious: Yes (Other)
  Sender: MYLAN
  Company Number: US-MYLANLABS-2024M1090819

PATIENT
  Age: 38 Year
  Sex: Female

DRUGS (3)
  1. SILDENAFIL [Suspect]
     Active Substance: SILDENAFIL
     Indication: Pulmonary hypertension
     Dosage: UNK
     Route: 065
  2. WARFARIN [Suspect]
     Active Substance: WARFARIN
     Indication: Pulmonary hypertension
     Dosage: UNK
     Route: 065
  3. LEVAMISOLE [Concomitant]
     Active Substance: LEVAMISOLE
     Indication: Product used for unknown indication
     Dosage: UNK
     Route: 065

REACTIONS (2)
  - Drug ineffective [Unknown]
  - Treatment noncompliance [Unknown]
